FAERS Safety Report 10716642 (Version 1)
Quarter: 2015Q1

REPORT INFORMATION
  Report Type: Spontaneous
  Country: IT (occurrence: IT)
  Receive Date: 20150116
  Receipt Date: 20150116
  Transmission Date: 20150721
  Serious: Yes (Other)
  Sender: FDA-Public Use
  Company Number: IT-BAXTER-2015BAX001275

PATIENT
  Age: 71 Year
  Sex: Female

DRUGS (5)
  1. PDN [Suspect]
     Active Substance: PREDNISOLONE ACETATE
     Indication: THROMBOCYTOPENIA
     Route: 065
  2. AZATHIOPRINE. [Suspect]
     Active Substance: AZATHIOPRINE
     Indication: THROMBOCYTOPENIA
     Route: 065
  3. INFLUENZA VACCINATION [Suspect]
     Active Substance: INFLUENZA VIRUS VACCINE
     Indication: THROMBOCYTOPENIA
     Route: 065
  4. KIOVIG [Suspect]
     Active Substance: HUMAN IMMUNOGLOBULIN G
     Indication: THROMBOCYTOPENIA
     Route: 042
  5. DANAZOL. [Suspect]
     Active Substance: DANAZOL
     Indication: THROMBOCYTOPENIA
     Route: 065

REACTIONS (1)
  - Treatment failure [Recovered/Resolved]
